FAERS Safety Report 8441048-X (Version None)
Quarter: 2012Q2

REPORT INFORMATION
  Report Type: 
  Country: None (occurrence: None)
  Receive Date: 20120615
  Receipt Date: 20110524
  Transmission Date: 20120825
  Serious: No
  Sender: FDA-Public Use
  Company Number: US-NOVEN-11US002504

PATIENT

DRUGS (2)
  1. DAYTRANA [Suspect]
     Indication: ATTENTION DEFICIT/HYPERACTIVITY DISORDER
     Dosage: 30 MG, QD
     Route: 062
     Dates: start: 20110520
  2. DAYTRANA [Suspect]
     Dosage: 10 MG, QD
     Dates: start: 20110421, end: 20110520

REACTIONS (5)
  - CHEST PAIN [None]
  - ERYTHEMA [None]
  - MUSCLE SPASMS [None]
  - SKIN IRRITATION [None]
  - HYPERHIDROSIS [None]
